FAERS Safety Report 10215605 (Version 1)
Quarter: 2014Q2

REPORT INFORMATION
  Report Type: Spontaneous
  Country: US (occurrence: US)
  Receive Date: 20140604
  Receipt Date: 20140604
  Transmission Date: 20141212
  Serious: Yes (Other)
  Sender: FDA-Public Use
  Company Number: US-JNJFOC-20140517337

PATIENT
  Age: 75 Year
  Sex: Female
  Weight: 67.59 kg

DRUGS (2)
  1. XARELTO [Suspect]
     Indication: THROMBOSIS
     Route: 048
     Dates: start: 2014, end: 201404
  2. XARELTO [Suspect]
     Indication: THROMBOSIS
     Route: 048
     Dates: start: 201402, end: 20140312

REACTIONS (2)
  - Pulmonary thrombosis [Unknown]
  - Inappropriate schedule of drug administration [Unknown]
